FAERS Safety Report 9033196 (Version 1)
Quarter: 2013Q1

REPORT INFORMATION
  Report Type: Spontaneous
  Country: US (occurrence: US)
  Receive Date: 20130128
  Receipt Date: 20130128
  Transmission Date: 20140127
  Serious: Yes (Other)
  Sender: FDA-Public Use
  Company Number: US-AMGEN-USASP2013003546

PATIENT
  Age: 42 Year
  Sex: Male

DRUGS (1)
  1. ENBREL [Suspect]
     Indication: PSORIATIC ARTHROPATHY
     Dosage: 50 MG, QWK
     Dates: start: 20080501

REACTIONS (7)
  - Osteonecrosis [Recovered/Resolved]
  - Tooth fracture [Recovered/Resolved]
  - Bone loss [Recovered/Resolved]
  - Tooth abscess [Recovered/Resolved]
  - Arthritis [Recovered/Resolved]
  - Toothache [Recovered/Resolved]
  - Sensitivity of teeth [Recovered/Resolved]
